FAERS Safety Report 12764233 (Version 1)
Quarter: 2016Q3

REPORT INFORMATION
  Report Type: Spontaneous
  Country: PL (occurrence: PL)
  Receive Date: 20160920
  Receipt Date: 20160920
  Transmission Date: 20161109
  Serious: Yes (Hospitalization, Congenital Anomaly)
  Sender: FDA-Public Use
  Company Number: PL-ASTRAZENECA-2016SE97827

PATIENT

DRUGS (5)
  1. ROVAMYCINE [Concomitant]
     Active Substance: SPIRAMYCIN
     Dosage: 9 MLN UNITS.
  2. SULPHADIAZINE [Concomitant]
     Active Substance: SULFADIAZINE
     Route: 048
  3. OMEPRAZOLE. [Suspect]
     Active Substance: OMEPRAZOLE
     Route: 064
  4. PIRIMETHAMINE [Concomitant]
     Route: 048
  5. FOLIC ACID. [Concomitant]
     Active Substance: FOLIC ACID

REACTIONS (1)
  - Congenital toxoplasmosis [Not Recovered/Not Resolved]
